FAERS Safety Report 18583477 (Version 1)
Quarter: 2020Q4

REPORT INFORMATION
  Report Type: Report from Study
  Country: None (occurrence: SE)
  Receive Date: 20201207
  Receipt Date: 20201207
  Transmission Date: 20210114
  Serious: Yes (Hospitalization, Other)
  Sender: FDA-Public Use
  Company Number: SE-ABBVIE-20K-150-3672796-00

PATIENT
  Age: 70 Year
  Sex: Male

DRUGS (2)
  1. DUODOPA [Suspect]
     Active Substance: CARBIDOPA\LEVODOPA
  2. DUODOPA [Suspect]
     Active Substance: CARBIDOPA\LEVODOPA
     Indication: PARKINSON^S DISEASE
     Dosage: THERAPY DURATION: REMAINED AT 16H
     Route: 050
     Dates: start: 20200914

REACTIONS (17)
  - Vomiting [Recovered/Resolved with Sequelae]
  - Sepsis [Unknown]
  - Hypophagia [Unknown]
  - Pseudomonas infection [Unknown]
  - Depressed level of consciousness [Not Recovered/Not Resolved]
  - Diarrhoea [Recovered/Resolved with Sequelae]
  - Malaise [Unknown]
  - Device dislocation [Not Recovered/Not Resolved]
  - Abdominal distension [Unknown]
  - Gastrointestinal disorder [Unknown]
  - Bacterial infection [Not Recovered/Not Resolved]
  - Gastrointestinal tract irritation [Unknown]
  - C-reactive protein increased [Unknown]
  - Adverse drug reaction [Unknown]
  - Medical device pain [Unknown]
  - Blood urine present [Not Recovered/Not Resolved]
  - Ileus [Not Recovered/Not Resolved]

NARRATIVE: CASE EVENT DATE: 2020
